FAERS Safety Report 19149444 (Version 1)
Quarter: 2021Q2

REPORT INFORMATION
  Report Type: Report from Study
  Country: US (occurrence: US)
  Receive Date: 20210416
  Receipt Date: 20210416
  Transmission Date: 20210717
  Serious: Yes (Hospitalization)
  Sender: FDA-Public Use
  Company Number: US-BIOGEN-2021BI01000392

PATIENT
  Age: 31 Year
  Sex: Female

DRUGS (1)
  1. VUMERITY [Suspect]
     Active Substance: DIROXIMEL FUMARATE
     Indication: MULTIPLE SCLEROSIS
     Route: 048
     Dates: start: 20210302, end: 20210404

REACTIONS (2)
  - Wound abscess [Not Recovered/Not Resolved]
  - Wound sepsis [Not Recovered/Not Resolved]

NARRATIVE: CASE EVENT DATE: 20210405
